FAERS Safety Report 5962659-7 (Version None)
Quarter: 2008Q4

REPORT INFORMATION
  Report Type: 
  Country: None (occurrence: None)
  Receive Date: 20081121
  Receipt Date: 20081119
  Transmission Date: 20090506
  Serious: Yes (Hospitalization)
  Sender: FDA-Public Use
  Company Number: PHHO2007HU16216

PATIENT
  Sex: Male
  Weight: 112 kg

DRUGS (3)
  1. TASIGNA [Suspect]
     Indication: CHRONIC MYELOID LEUKAEMIA
     Dosage: 400 MG, UNK
     Route: 048
     Dates: start: 20061011, end: 20070918
  2. BETALOC ZOK [Concomitant]
     Indication: HYPERTONIA
  3. COAPROVEL [Concomitant]
     Indication: HYPERTONIA

REACTIONS (5)
  - ANGINA PECTORIS [None]
  - CATHETERISATION CARDIAC [None]
  - CHEST DISCOMFORT [None]
  - MYOCARDIAL ISCHAEMIA [None]
  - STENT PLACEMENT [None]
